FAERS Safety Report 10257817 (Version 1)
Quarter: 2014Q2

REPORT INFORMATION
  Report Type: Spontaneous
  Country: US (occurrence: US)
  Receive Date: 20140625
  Receipt Date: 20140625
  Transmission Date: 20141212
  Serious: No
  Sender: FDA-Public Use
  Company Number: US-BAYER-2014-082256

PATIENT
  Sex: Female

DRUGS (19)
  1. ALEVE CAPLET [Suspect]
     Dosage: UNK UNK, UNK
  2. ALBUTEROL [Concomitant]
     Indication: WHEEZING
     Dosage: 108 (90 BASE) MCG/ACT, INHALE 2 PUFFS Q4HR AS NEEDED
  3. AMITRIPTYLINE [Concomitant]
     Dosage: 25 MG, 1 AT HS FOR ONE WEEK , THEN INCREASE TO 2 AT BEDTIME
  4. AZELASTINE [Concomitant]
     Dosage: 137 MCG/SPRAY,2 SPRAY BY NASAL 2 TIMES DAILY
     Route: 045
  5. BENZONATATE [Concomitant]
     Indication: COUGH
     Dosage: 100 MG, TID PRN
     Route: 048
  6. CYANOCOBALAMIN [Concomitant]
     Dosage: 1000 MCG/ML, UNK
     Route: 030
  7. DEXLANSOPRAZOLE [Concomitant]
     Dosage: 60 MG, DAILY
     Route: 048
  8. DIAZEPAM [Concomitant]
     Indication: MUSCLE SPASMS
     Dosage: 2 MG, HS
  9. FLAX SEED OIL [Concomitant]
     Dosage: 1000 MG, DAILY
     Route: 048
  10. FLUTICASONE [Concomitant]
     Dosage: 50 MCG/ACT, 2 SPRAYS DAILY
     Route: 045
  11. LIDOCAINE [Concomitant]
     Dosage: 5 %, UNK
  12. MONTELUKAST [Concomitant]
     Dosage: 10 MG, QON
     Route: 048
  13. MULTIVITAMIN [Concomitant]
     Dosage: UNK UNK, DAILY
     Route: 048
  14. ACETAMINOPHEN W/OXYCODONE [Concomitant]
     Indication: PAIN
     Dosage: 5.325 MG; EVERY 6 HOURS AS NEEDED
     Route: 048
  15. PREGABALIN [Concomitant]
     Dosage: 50 MG, BID
     Route: 048
  16. SUMATRIPTAN [Concomitant]
     Indication: MIGRAINE
     Dosage: 100 MG, QD AS NEEDED
     Route: 048
  17. SALINE [Concomitant]
     Dosage: 0.65 %, 2 SPRAYS BID
     Route: 045
  18. TOPIRAMATE [Concomitant]
     Dosage: 50 MG, BID
     Route: 048
  19. TRAZODONE [Concomitant]
     Dosage: 50 MG, QD
     Route: 048

REACTIONS (2)
  - Drug hypersensitivity [None]
  - Swelling [None]
